FAERS Safety Report 10593981 (Version 1)
Quarter: 2014Q4

REPORT INFORMATION
  Report Type: Spontaneous
  Country: US (occurrence: US)
  Receive Date: 20141119
  Receipt Date: 20141119
  Transmission Date: 20150529
  Serious: Yes (Hospitalization, Other)
  Sender: FDA-Public Use
  Company Number: US-PFIZER INC-2014315520

PATIENT
  Age: 47 Year
  Sex: Female
  Weight: 126.53 kg

DRUGS (10)
  1. LYRICA [Suspect]
     Active Substance: PREGABALIN
     Indication: NEUROPATHY PERIPHERAL
     Dosage: 150 MG, 2X/DAY
  2. LAMICTAL [Concomitant]
     Active Substance: LAMOTRIGINE
     Dosage: 200 MG, 2X/DAY
  3. JANUMET [Concomitant]
     Active Substance: METFORMIN HYDROCHLORIDE\SITAGLIPTIN PHOSPHATE
     Dosage: [METFORMIN HYDROCHLORIDE 50 MG]/[SITAGLIPTIN PHOSPHATE MONOHYDRATE 1000 MG]
  4. CYMBALTA [Concomitant]
     Active Substance: DULOXETINE HYDROCHLORIDE
     Dosage: 60 MG, 2X/DAY
  5. LISINOPRIL. [Concomitant]
     Active Substance: LISINOPRIL
     Dosage: 20 MG, 1X/DAY
  6. NEXIUM [Concomitant]
     Active Substance: ESOMEPRAZOLE MAGNESIUM
     Dosage: 40 MG, 1X/DAY (AT BEDTIME)
  7. LYRICA [Suspect]
     Active Substance: PREGABALIN
     Indication: FIBROMYALGIA
  8. SKELAXIN [Suspect]
     Active Substance: METAXALONE
     Indication: MUSCLE SPASMS
     Dosage: 800 MG, 3X/DAY
  9. KLONOPIN [Concomitant]
     Active Substance: CLONAZEPAM
     Indication: ANXIETY
     Dosage: 1 MG, 3X/DAY (AS NEEDED)
  10. DESONIDE. [Concomitant]
     Active Substance: DESONIDE
     Dosage: 1 DF (COMBINATION 37.5/25), 1X/DAY

REACTIONS (8)
  - Urinary tract infection [Unknown]
  - Speech disorder [Unknown]
  - Hypertension [Unknown]
  - Kidney infection [Unknown]
  - Mental impairment [Unknown]
  - Thinking abnormal [Unknown]
  - Infection [Unknown]
  - Delirium [Unknown]

NARRATIVE: CASE EVENT DATE: 2014
